FAERS Safety Report 12483433 (Version 3)
Quarter: 2016Q3

REPORT INFORMATION
  Report Type: Report from Study
  Country: US (occurrence: US)
  Receive Date: 20160621
  Receipt Date: 20160919
  Transmission Date: 20161109
  Serious: No
  Sender: FDA-Public Use
  Company Number: PHEH2016US015016

PATIENT
  Age: 25 Year
  Sex: Male

DRUGS (1)
  1. TOBI PODHALER [Suspect]
     Active Substance: TOBRAMYCIN
     Indication: CYSTIC FIBROSIS
     Route: 065

REACTIONS (8)
  - Cystic fibrosis related diabetes [Unknown]
  - Hypersensitivity [Unknown]
  - Depression [Unknown]
  - Dyspnoea [Unknown]
  - Vertigo [Unknown]
  - Weight increased [Unknown]
  - Malaise [Unknown]
  - Osteoporosis [Unknown]

NARRATIVE: CASE EVENT DATE: 2014
